FAERS Safety Report 12111117 (Version 2)
Quarter: 2016Q1

REPORT INFORMATION
  Report Type: Other
  Country: GB (occurrence: GB)
  Receive Date: 20160224
  Receipt Date: 20160304
  Transmission Date: 20160526
  Serious: Yes (Hospitalization)
  Sender: FDA-Public Use
  Company Number: GB-SHIRE-GB201602128

PATIENT
  Sex: Female

DRUGS (1)
  1. VPRIV [Suspect]
     Active Substance: VELAGLUCERASE ALFA
     Indication: GAUCHER^S DISEASE
     Dosage: 1200 IU (ALTERNATING WITH 1600 IU), 1X/2WKS (FORTNIGHTLY)
     Route: 041

REACTIONS (2)
  - Tonsillitis [Unknown]
  - Cough [Unknown]
